FAERS Safety Report 15531778 (Version 1)
Quarter: 2018Q4

REPORT INFORMATION
  Report Type: Spontaneous
  Country: MX (occurrence: MX)
  Receive Date: 20181019
  Receipt Date: 20181019
  Transmission Date: 20190205
  Serious: Yes (Hospitalization)
  Sender: FDA-Public Use
  Company Number: MX-ASTRAZENECA-2018SF37100

PATIENT
  Age: 17523 Day
  Sex: Female

DRUGS (1)
  1. IRESSA [Suspect]
     Active Substance: GEFITINIB
     Indication: LUNG NEOPLASM MALIGNANT
     Route: 048
     Dates: start: 20180701

REACTIONS (1)
  - Abscess [Recovered/Resolved]

NARRATIVE: CASE EVENT DATE: 20170601
